FAERS Safety Report 23491881 (Version 1)
Quarter: 2024Q1

REPORT INFORMATION
  Report Type: Spontaneous
  Country: US (occurrence: US)
  Receive Date: 20240207
  Receipt Date: 20240207
  Transmission Date: 20240410
  Serious: No
  Sender: FDA-Public Use
  Company Number: US-KYOWAKIRIN-2024KK001344

PATIENT
  Age: 4 Year
  Sex: Female

DRUGS (5)
  1. NEUPOGEN [Suspect]
     Active Substance: FILGRASTIM
     Indication: Autoimmune neutropenia
     Dosage: IV FILGASTRIM, 5 MCG/KG EACH
     Route: 042
  2. NEUPOGEN [Suspect]
     Active Substance: FILGRASTIM
     Dosage: IV FILGASTRIM, 5 MCG/KG EACH
     Route: 042
  3. NEUPOGEN [Suspect]
     Active Substance: FILGRASTIM
     Dosage: A TOTAL DOSE OF 2 MCG/KG OF SC FILGRASTIM
     Route: 058
  4. NEUPOGEN [Suspect]
     Active Substance: FILGRASTIM
     Dosage: A SINGLE FULL DOSE
     Route: 058
  5. NEUPOGEN [Suspect]
     Active Substance: FILGRASTIM
     Dosage: 0.5 MCG/KG OF SC FILGRASTIM
     Route: 058

REACTIONS (1)
  - Type IV hypersensitivity reaction [Unknown]
